FAERS Safety Report 4818870-1 (Version None)
Quarter: 2005Q4

REPORT INFORMATION
  Report Type: 
  Country: None (occurrence: None)
  Receive Date: 20051101
  Receipt Date: 20051020
  Transmission Date: 20060501
  Serious: Yes (Other)
  Sender: FDA-Public Use
  Company Number: 006#1#2005-00047

PATIENT
  Sex: Male

DRUGS (1)
  1. EDEX [Suspect]
     Dosage: 1.20 MCG
     Route: 017
     Dates: start: 20000101, end: 20050101

REACTIONS (2)
  - ABNORMAL BEHAVIOUR [None]
  - RETROGRADE AMNESIA [None]
